FAERS Safety Report 8113962-6 (Version None)
Quarter: 2012Q1

REPORT INFORMATION
  Report Type: 
  Country: None (occurrence: None)
  Receive Date: 20120203
  Receipt Date: 20120124
  Transmission Date: 20120608
  Serious: Yes (Other)
  Sender: FDA-Public Use
  Company Number: JP-RB-036911-12

PATIENT
  Age: 68 Year
  Sex: Female

DRUGS (2)
  1. BUPRENORPHINE HCL [Suspect]
     Indication: PAIN
     Route: 030
  2. PENTAZOCINE LACTATE [Concomitant]
     Indication: PAIN
     Dosage: UNKNOWN DOSAGE DETAILS
     Route: 065

REACTIONS (2)
  - RESPIRATORY DEPRESSION [None]
  - GLOSSOPTOSIS [None]
